FAERS Safety Report 16483477 (Version 3)
Quarter: 2019Q3

REPORT INFORMATION
  Report Type: Report from Study
  Country: IT (occurrence: IT)
  Receive Date: 20190627
  Receipt Date: 20190717
  Transmission Date: 20191004
  Serious: Yes (Other)
  Sender: FDA-Public Use
  Company Number: IT-TEVA-2019-IT-1067351

PATIENT
  Age: 70 Year
  Sex: Male

DRUGS (5)
  1. SOFOSBUVIR [Concomitant]
     Active Substance: SOFOSBUVIR
  2. RITUXIMAB. [Suspect]
     Active Substance: RITUXIMAB
     Indication: DIFFUSE LARGE B-CELL LYMPHOMA
     Route: 065
  3. GEMCITABINE. [Suspect]
     Active Substance: GEMCITABINE
     Indication: DIFFUSE LARGE B-CELL LYMPHOMA
     Route: 065
  4. OXALIPLATIN. [Suspect]
     Active Substance: OXALIPLATIN
     Indication: DIFFUSE LARGE B-CELL LYMPHOMA
     Route: 065
  5. DACLATASVIR. [Concomitant]
     Active Substance: DACLATASVIR

REACTIONS (2)
  - Drug-induced liver injury [Recovered/Resolved]
  - Hepatitis C [Unknown]
